FAERS Safety Report 8564995 (Version 2)
Quarter: 2014Q1

REPORT INFORMATION
  Report Type: Report from Study
  Country: US (occurrence: US)
  Receive Date: 20120516
  Receipt Date: 20140311
  Transmission Date: 20141002
  Serious: Yes (Hospitalization, Other)
  Sender: FDA-Public Use
  Company Number: US-ALEXION-A201200212

PATIENT
  Age: 26 Year
  Sex: Female

DRUGS (4)
  1. SOLIRIS [Suspect]
     Indication: PAROXYSMAL NOCTURNAL HAEMOGLOBINURIA
     Dosage: UNK
     Route: 042
  2. SOLIRIS [Suspect]
     Dosage: 1200 MG, UNK
     Route: 042
  3. SOLIRIS [Suspect]
     Dosage: 1200 MG, UNK
     Route: 042
  4. SOLIRIS [Suspect]
     Dosage: 900 MG, UNK
     Route: 042

REACTIONS (3)
  - Fall [Unknown]
  - Haematoma [Unknown]
  - Oedema peripheral [Unknown]
